FAERS Safety Report 5139888-8 (Version None)
Quarter: 2006Q4

REPORT INFORMATION
  Report Type: 
  Country: None (occurrence: None)
  Receive Date: 20061025
  Receipt Date: 20061025
  Transmission Date: 20070319
  Serious: Yes (Other)
  Sender: FDA-Public Use
  Company Number: None

PATIENT
  Age: 71 Year
  Sex: Male
  Weight: 70.3 kg

DRUGS (11)
  1. SIMVASTATIN [Suspect]
  2. VALSARTAN [Concomitant]
  3. FISH OIL [Concomitant]
  4. NIACIN (NIASPAN-KOS) [Concomitant]
  5. FINASTERIDE [Concomitant]
  6. BETAMETHASONE DIPROPIONATE [Concomitant]
  7. INDOMETHACIN [Concomitant]
  8. CHLORPHENIRAMINE MALEATE [Concomitant]
  9. NITROGLYCERIN [Concomitant]
  10. AMMONIUM LACTATE [Concomitant]
  11. CLOTRIMAZOLE [Concomitant]

REACTIONS (1)
  - MYALGIA [None]
